FAERS Safety Report 17755494 (Version 6)
Quarter: 2022Q2

REPORT INFORMATION
  Report Type: Spontaneous
  Country: BR (occurrence: BR)
  Receive Date: 20200507
  Receipt Date: 20220628
  Transmission Date: 20220721
  Serious: Yes (Hospitalization, Other)
  Sender: FDA-Public Use
  Company Number: BR-GLAXOSMITHKLINE-BR2020AMR035111

PATIENT

DRUGS (1)
  1. NUCALA [Suspect]
     Active Substance: MEPOLIZUMAB
     Indication: Asthma
     Dosage: 100 MG, Z
     Route: 042
     Dates: start: 20190913

REACTIONS (16)
  - Asthma [Unknown]
  - Asthmatic crisis [Recovering/Resolving]
  - Lung disorder [Recovering/Resolving]
  - Dyspnoea [Recovering/Resolving]
  - Headache [Unknown]
  - Malaise [Unknown]
  - Pyrexia [Unknown]
  - Pneumonia [Unknown]
  - Respiratory disorder [Unknown]
  - Cough [Unknown]
  - Wheezing [Unknown]
  - Chest discomfort [Unknown]
  - Incorrect product administration duration [Unknown]
  - Sinusitis [Unknown]
  - Dysphonia [Unknown]
  - Bedridden [Unknown]

NARRATIVE: CASE EVENT DATE: 20200301
